FAERS Safety Report 17600419 (Version 2)
Quarter: 2020Q1

REPORT INFORMATION
  Report Type: Spontaneous
  Country: IT (occurrence: IT)
  Receive Date: 20200330
  Receipt Date: 20200331
  Transmission Date: 20200409
  Serious: Yes (Life-Threatening, Other)
  Sender: FDA-Public Use
  Company Number: IT-PFIZER INC-2020109654

PATIENT
  Age: 77 Year
  Sex: Female

DRUGS (1)
  1. PANTORC [Suspect]
     Active Substance: PANTOPRAZOLE SODIUM
     Indication: GASTRITIS
     Dosage: 40 MILLIGRAM
     Route: 042

REACTIONS (2)
  - Anaphylactic shock [Unknown]
  - Palatal oedema [Unknown]

NARRATIVE: CASE EVENT DATE: 20200129
